FAERS Safety Report 6206500-6 (Version None)
Quarter: 2009Q2

REPORT INFORMATION
  Report Type: 
  Country: None (occurrence: None)
  Receive Date: 20090528
  Receipt Date: 20090525
  Transmission Date: 20091009
  Serious: Yes (Death)
  Sender: FDA-Public Use
  Company Number: JP-BAYER-200911714BYL

PATIENT
  Age: 69 Year
  Sex: Male

DRUGS (8)
  1. CIPROXAN-I.V. [Suspect]
     Indication: PNEUMONIA
     Dosage: TOTAL DAILY DOSE: 600 MG  UNIT DOSE: 300 MG
     Route: 041
     Dates: start: 20081003, end: 20081008
  2. PENTCILLIN [Concomitant]
     Indication: PNEUMONIA
     Dosage: TOTAL DAILY DOSE: 6 G  UNIT DOSE: 2 G
     Route: 042
     Dates: start: 20081001, end: 20081002
  3. VFEND [Concomitant]
     Indication: PNEUMONIA
     Dosage: TOTAL DAILY DOSE: 300 MG  UNIT DOSE: 300 MG
     Route: 042
     Dates: start: 20081004, end: 20081008
  4. TARGOCID [Concomitant]
     Indication: PNEUMONIA
     Dosage: TOTAL DAILY DOSE: 400 MG  UNIT DOSE: 400 MG
     Route: 042
     Dates: start: 20081006, end: 20081008
  5. GASTER [Concomitant]
     Dosage: TOTAL DAILY DOSE: 40 MG  UNIT DOSE: 40 MG
     Route: 042
     Dates: start: 20081003, end: 20081008
  6. DIPRIVAN [Concomitant]
     Route: 042
     Dates: start: 20081003, end: 20081008
  7. ELASPOL [Concomitant]
     Route: 042
     Dates: start: 20081003, end: 20081008
  8. PREDOPA [Concomitant]
     Route: 042
     Dates: start: 20081003, end: 20081008

REACTIONS (1)
  - DEATH [None]
